FAERS Safety Report 25739670 (Version 1)
Quarter: 2025Q3

REPORT INFORMATION
  Report Type: Report from Study
  Country: US (occurrence: US)
  Receive Date: 20250829
  Receipt Date: 20250829
  Transmission Date: 20251021
  Serious: Yes (Hospitalization)
  Sender: ALEXION PHARMACEUTICALS
  Company Number: US-ASTRAZENECA-202508USA022061US

PATIENT
  Sex: Female

DRUGS (2)
  1. SAPHNELO [Suspect]
     Active Substance: ANIFROLUMAB-FNIA
     Indication: Systemic lupus erythematosus
  2. NAPROXEN [Concomitant]
     Active Substance: NAPROXEN

REACTIONS (3)
  - Costochondritis [Unknown]
  - Bacterial test positive [Unknown]
  - Pneumonia bacterial [Unknown]
